FAERS Safety Report 5316196-3 (Version None)
Quarter: 2007Q2

REPORT INFORMATION
  Report Type: 
  Country: None (occurrence: None)
  Receive Date: 20070503
  Receipt Date: 20070427
  Transmission Date: 20071010
  Serious: Yes (Hospitalization)
  Sender: FDA-Public Use
  Company Number: US-PFIZER INC-2007034304

PATIENT
  Age: 97 Year
  Sex: Male

DRUGS (1)
  1. VIAGRA [Suspect]

REACTIONS (3)
  - CONSTIPATION [None]
  - DYSURIA [None]
  - URINARY INCONTINENCE [None]
